FAERS Safety Report 5481707-4 (Version None)
Quarter: 2007Q3

REPORT INFORMATION
  Report Type: 
  Country: None (occurrence: None)
  Receive Date: 20070917
  Receipt Date: 20070215
  Transmission Date: 20080115
  Serious: Yes (Life-Threatening, Hospitalization)
  Sender: FDA-Public Use
  Company Number: S07-USA-00732-01

PATIENT
  Age: 54 Year
  Sex: Female

DRUGS (9)
  1. CELEXA [Suspect]
     Indication: DEPRESSION
     Dosage: 80 MG QD PO
     Route: 048
  2. CELEXA [Suspect]
     Indication: DEPRESSION
     Dosage: 60 MG QD PO
     Route: 048
  3. ESTROGEN PATCH (ESTROGEN) [Concomitant]
  4. TOPAMAX [Concomitant]
  5. BUSPIRONE HCL [Concomitant]
  6. TRIAMETERENE/HYDROCHLOROTHIAZIDE [Concomitant]
  7. CELEXA [Suspect]
     Indication: DEPRESSION
     Dosage: 60 MG QD PO
     Route: 048
  8. IMITREX [Suspect]
     Indication: MIGRAINE
     Dosage: 100 MG QD PO
     Route: 048
     Dates: start: 20061201, end: 20061201
  9. IMITREX [Suspect]
     Indication: MIGRAINE
     Dosage: 100 MG QD PO
     Route: 048
     Dates: start: 20070127, end: 20070131

REACTIONS (2)
  - MIGRAINE [None]
  - SEROTONIN SYNDROME [None]
